FAERS Safety Report 6483841-9 (Version None)
Quarter: 2009Q4

REPORT INFORMATION
  Report Type: 
  Country: None (occurrence: None)
  Receive Date: 20091209
  Receipt Date: 20091127
  Transmission Date: 20100525
  Serious: Yes (Hospitalization)
  Sender: FDA-Public Use
  Company Number: JP-ELI_LILLY_AND_COMPANY-JP200911005163

PATIENT
  Sex: Male
  Weight: 63 kg

DRUGS (3)
  1. TADALAFIL [Suspect]
     Indication: ERECTILE DYSFUNCTION
     Dosage: 20 MG, AS NEEDED
     Route: 048
     Dates: start: 20090406
  2. DIAMOX /00016901/ [Concomitant]
     Indication: GLAUCOMA
     Dosage: 500 MG, DAILY (1/D)
     Route: 048
  3. GLUCONSAN K [Concomitant]
     Indication: GLAUCOMA
     Dosage: 10 MEQ, DAILY (1/D)
     Route: 048

REACTIONS (1)
  - GLAUCOMA [None]
